FAERS Safety Report 9819856 (Version 2)
Quarter: 2014Q1

REPORT INFORMATION
  Report Type: Spontaneous
  Country: US (occurrence: US)
  Receive Date: 20140116
  Receipt Date: 20140116
  Transmission Date: 20141002
  Serious: Yes (Other)
  Sender: FDA-Public Use
  Company Number: US-GLENMARK GENERICS (EUROPE) LTD-2013GMK008031

PATIENT
  Sex: Female

DRUGS (5)
  1. PRAMIPEXOLE [Suspect]
     Indication: RESTLESS LEGS SYNDROME
     Dosage: UNK, PRN
  2. PRAMIPEXOLE [Suspect]
     Dosage: UNK, HS
  3. BLOOD THINNER [Concomitant]
     Indication: PRODUCT USED FOR UNKNOWN INDICATION
     Dosage: UNK
  4. PREMARIN [Concomitant]
     Indication: HOT FLUSH
     Dosage: UNK, OD
  5. PREMARIN [Concomitant]
     Indication: MENOPAUSE

REACTIONS (3)
  - Drug dependence [Not Recovered/Not Resolved]
  - Restless legs syndrome [Not Recovered/Not Resolved]
  - Condition aggravated [Not Recovered/Not Resolved]
